FAERS Safety Report 10028344 (Version 1)
Quarter: 2014Q1

REPORT INFORMATION
  Report Type: Spontaneous
  Country: US (occurrence: None)
  Receive Date: 20140307
  Receipt Date: 20140307
  Transmission Date: 20141002
  Serious: Yes (Hospitalization)
  Sender: FDA-Public Use
  Company Number: SYM-2014-18254

PATIENT
  Sex: Male

DRUGS (22)
  1. XENAZINE [Suspect]
     Indication: HUNTINGTON^S DISEASE
     Dosage: 4 IN 1 D
     Route: 048
  2. ATIVAN (LORAZEPAM) (LORAZEPAM) [Concomitant]
  3. ASPIRIN (ACETYLSALICYLIC ACID) (ACETYLSALICYLIC ACID) [Concomitant]
  4. COLACE (DOCUSATE SODIUM) (DOCUSATE SODIUM) [Concomitant]
  5. FISH OIL (FISH OIL) (FISH OIL) [Concomitant]
  6. FLOMAX (MORNIFLUMATE) (MORNIFLUMATE) [Concomitant]
  7. FLORESTOR (SACCHARMYCESS BOULARDIL LYOPHYLIZED) (SACCHOMYCES BOULARDIL LYOPHILIZED) [Concomitant]
  8. LIPITOR (ATORVASTATIN CALCIUM) (ATORVASTATIN CALCIUM) [Concomitant]
  9. METOPROLOL (METOPROLOL) (METOPROLOL) [Concomitant]
  10. NITRODERM (GLYCERYL TRINITRATE) (GLYCERYL TRINITRATE) [Concomitant]
  11. NORCO (VICODIN) (PARACETAMOL, HYDROCODONE BITARTRATE) [Concomitant]
  12. NUDEXA (OTHER THERAPEUTIC PRODUCTS) (NULL) [Concomitant]
  13. ONDANSETRON (ONDANSETRON) (ONDANSETRON) [Concomitant]
  14. PLAVIX (CLOPIDOGREL BISULFATE) 9CLOPIDOGREL BITARTRATE) [Concomitant]
  15. POTASSIUM CHLORIDE (POTASSIUM CHLORIDE) (POTASSIUM CHLORIDE) [Concomitant]
  16. PROSCAR (FINASTERIDE) (FINASTERIDE) [Concomitant]
  17. PROTONIX (PANTOPRAZOLE SODIUM SESQUIHYDRATE) (PANTOPRAZOLE SODIUM SESQUIHYDRATE) [Concomitant]
  18. PROVENTIL (SALBUTAMOL) (SALBUTAMOL) [Concomitant]
  19. RANEXA (RANOLAZINE) (RANOLAZINE) [Concomitant]
  20. REGLAN (METOCLOPRAMIDE) (METOCLOPRAMIDE) [Concomitant]
  21. TYLENOL (PARACETAMOL) (PARACETAMOL) [Concomitant]
  22. VIT B12 (CYANOCOBALMIN) (CYANOCOBALMIN) [Concomitant]

REACTIONS (1)
  - Hospitalisation [None]
